FAERS Safety Report 18042354 (Version 1)
Quarter: 2020Q3

REPORT INFORMATION
  Report Type: Spontaneous
  Country: US (occurrence: US)
  Receive Date: 20200716
  Receipt Date: 20200716
  Transmission Date: 20201103
  Serious: Yes (Life-Threatening, Hospitalization)
  Sender: FDA-Public Use
  Company Number: None

PATIENT
  Age: 70 Year
  Sex: Male
  Weight: 89 kg

DRUGS (1)
  1. BUPRENORPHINE.NALOXONE (BUPRENORPHINE HCL 2MG/NALOXONE HCL 0.5MG TAB , [Suspect]
     Active Substance: BUPRENORPHINE\NALOXONE
     Indication: DRUG DEPENDENCE
     Route: 060
     Dates: start: 20190605, end: 20190720

REACTIONS (3)
  - Syncope [None]
  - Torsade de pointes [None]
  - Palpitations [None]

NARRATIVE: CASE EVENT DATE: 20190720
